FAERS Safety Report 9314257 (Version 2)
Quarter: 2013Q3

REPORT INFORMATION
  Report Type: Spontaneous
  Country: NO (occurrence: NO)
  Receive Date: 20130529
  Receipt Date: 20130909
  Transmission Date: 20140515
  Serious: Yes (Other)
  Sender: FDA-Public Use
  Company Number: PHHY2013NO052663

PATIENT
  Age: 40 Year
  Sex: Female

DRUGS (4)
  1. GILENYA [Suspect]
     Indication: MULTIPLE SCLEROSIS
     Dosage: 0.5 MG, QD
     Route: 048
     Dates: start: 20130403, end: 20130513
  2. IBUX [Concomitant]
     Route: 048
  3. VIT D [Concomitant]
     Indication: MULTIPLE SCLEROSIS
     Dosage: 2 UG, QD
     Route: 048
  4. IMOVANE [Concomitant]
     Route: 048

REACTIONS (2)
  - Angina pectoris [Recovering/Resolving]
  - Dyspnoea [Recovering/Resolving]
